FAERS Safety Report 17560974 (Version 1)
Quarter: 2020Q1

REPORT INFORMATION
  Report Type: Spontaneous
  Country: FR (occurrence: FR)
  Receive Date: 20200319
  Receipt Date: 20200319
  Transmission Date: 20200409
  Serious: Yes (Life-Threatening)
  Sender: FDA-Public Use
  Company Number: FR-PFIZER INC-2020116051

PATIENT
  Age: 44 Year
  Sex: Male
  Weight: 163 kg

DRUGS (4)
  1. NIVESTIM [Suspect]
     Active Substance: FILGRASTIM
     Indication: PANCYTOPENIA
     Dosage: UNK
     Route: 042
     Dates: start: 20191207, end: 20191212
  2. RITUXIMAB. [Concomitant]
     Active Substance: RITUXIMAB
     Indication: HODGKIN^S DISEASE
     Dosage: 375 MG/M2, UNK
     Route: 042
     Dates: start: 20191129, end: 20191129
  3. CYCLOPHOSPHAMIDE. [Concomitant]
     Active Substance: CYCLOPHOSPHAMIDE
     Indication: HODGKIN^S DISEASE
     Dosage: UNK
     Route: 042
     Dates: start: 20191202, end: 20191202
  4. DOXORUBICIN [Concomitant]
     Active Substance: DOXORUBICIN
     Indication: HODGKIN^S DISEASE
     Dosage: UNK
     Route: 042
     Dates: start: 20191202, end: 20191202

REACTIONS (3)
  - Generalised oedema [Recovered/Resolved]
  - Respiratory distress [Recovered/Resolved]
  - Capillary leak syndrome [Recovered/Resolved]

NARRATIVE: CASE EVENT DATE: 20191213
